FAERS Safety Report 9971406 (Version 1)
Quarter: 2014Q1

REPORT INFORMATION
  Report Type: Spontaneous
  Country: US (occurrence: None)
  Receive Date: 20140304
  Receipt Date: 20140304
  Transmission Date: 20141002
  Serious: Yes (Other)
  Sender: FDA-Public Use
  Company Number: FK201400596

PATIENT
  Age: 60 Year
  Sex: Male

DRUGS (1)
  1. HYDRALAZINE [Suspect]
     Indication: PRODUCT USED FOR UNKNOWN INDICATION

REACTIONS (6)
  - Pericarditis [None]
  - Systemic lupus erythematosus [None]
  - Leukopenia [None]
  - Arthritis [None]
  - Atrial fibrillation [None]
  - Transaminases increased [None]
